FAERS Safety Report 9338220 (Version 1)
Quarter: 2013Q2

REPORT INFORMATION
  Report Type: Spontaneous
  Country: US (occurrence: None)
  Receive Date: 20130605
  Receipt Date: 20130605
  Transmission Date: 20140414
  Serious: Yes (Death)
  Sender: FDA-Public Use
  Company Number: None

PATIENT
  Age: 23 Year
  Sex: Male
  Weight: 123.4 kg

DRUGS (16)
  1. CLOZAPINE [Suspect]
     Indication: SCHIZOPHRENIA
     Route: 048
     Dates: start: 20130219, end: 20130312
  2. CLOZAPINE [Suspect]
     Route: 048
  3. ZITHROMAX [Concomitant]
  4. QUETIAPINE [Concomitant]
  5. INVEGA [Concomitant]
  6. INVEGA SUSTENNA [Concomitant]
  7. DEPAKOTE ER [Concomitant]
  8. PROVENTIL MDI [Concomitant]
  9. DIAZEPAM [Concomitant]
  10. PROZAC [Concomitant]
  11. IBUPROFEN [Concomitant]
  12. METOPROLOL [Concomitant]
  13. COUMADIN [Concomitant]
  14. KEFLEX [Concomitant]
  15. HEPARIN [Concomitant]
  16. LOVENOX [Concomitant]

REACTIONS (3)
  - Pulmonary embolism [None]
  - Deep vein thrombosis [None]
  - Respiratory arrest [None]
